FAERS Safety Report 8282587-4 (Version None)
Quarter: 2012Q2

REPORT INFORMATION
  Report Type: 
  Country: None (occurrence: None)
  Receive Date: 20120410
  Receipt Date: 20120330
  Transmission Date: 20120825
  Serious: Yes (Hospitalization)
  Sender: FDA-Public Use
  Company Number: DKLU1078006

PATIENT
  Age: 56 Year
  Sex: Female

DRUGS (10)
  1. SABRIL [Suspect]
     Indication: EPILEPSY
     Dosage: 1500 MG MILLIGRAM(S), 2 IN 1 D, ORAL
     Route: 048
     Dates: start: 20100806
  2. SABRIL [Suspect]
     Indication: COMPLEX PARTIAL SEIZURES
     Dosage: 1500 MG MILLIGRAM(S), 2 IN 1 D, ORAL
     Route: 048
     Dates: start: 20100806
  3. ZONISAMIDE [Concomitant]
  4. PHENYTOIN [Concomitant]
  5. CARBAMAZEPINE [Concomitant]
  6. TOPIRAMATE (TOPIORAMATE) [Concomitant]
  7. FELBAMATE [Concomitant]
  8. DEPAKOTE [Concomitant]
  9. LAMOTRIGINE [Concomitant]
  10. LEVETIRACETAM [Concomitant]

REACTIONS (1)
  - BRAIN OPERATION [None]
